FAERS Safety Report 7360175-1 (Version None)
Quarter: 2011Q1

REPORT INFORMATION
  Report Type: 
  Country: None (occurrence: None)
  Receive Date: 20110318
  Receipt Date: 20110315
  Transmission Date: 20110831
  Serious: Yes (Other)
  Sender: FDA-Public Use
  Company Number: US-PFIZER INC-2011057303

PATIENT

DRUGS (1)
  1. GEODON [Suspect]
     Dosage: 20 MG, UNK

REACTIONS (1)
  - DYSKINESIA [None]
